FAERS Safety Report 4589696-1 (Version None)
Quarter: 2005Q1

REPORT INFORMATION
  Report Type: 
  Country: None (occurrence: None)
  Receive Date: 20050217
  Receipt Date: 20050204
  Transmission Date: 20050727
  Serious: Yes (Hospitalization)
  Sender: FDA-Public Use
  Company Number: 2005AP00989

PATIENT
  Age: 61 Year
  Sex: Male

DRUGS (2)
  1. PROPOFOL [Suspect]
     Dosage: 150 MG DAILY IV
     Route: 042
     Dates: start: 20021112, end: 20021112
  2. KETAMINE HCL [Suspect]
     Dosage: 70 MG DAILY
     Dates: start: 20021112, end: 20021112

REACTIONS (4)
  - CONFUSIONAL STATE [None]
  - DELIRIUM [None]
  - HALLUCINATION [None]
  - SOMNOLENCE [None]
